FAERS Safety Report 16035916 (Version 1)
Quarter: 2019Q1

REPORT INFORMATION
  Report Type: Spontaneous
  Country: US (occurrence: US)
  Receive Date: 20190206
  Receipt Date: 20190206
  Transmission Date: 20190418
  Serious: No
  Sender: FDA-Public Use
  Company Number: None

PATIENT
  Age: 58 Year
  Sex: Male

DRUGS (3)
  1. ATAZANAVIR SULF CAP 300MG [Suspect]
     Active Substance: ATAZANAVIR SULFATE
     Dates: start: 2018
  2. RITONAVIR TAB 100MG [Suspect]
     Active Substance: RITONAVIR
     Dates: start: 2018
  3. DESCOVY [Suspect]
     Active Substance: EMTRICITABINE\TENOFOVIR ALAFENAMIDE FUMARATE

REACTIONS (2)
  - Prostate cancer [None]
  - Hypoaesthesia [None]

NARRATIVE: CASE EVENT DATE: 20190204
